FAERS Safety Report 10349592 (Version 3)
Quarter: 2014Q4

REPORT INFORMATION
  Report Type: Spontaneous
  Country: US (occurrence: US)
  Receive Date: 20140730
  Receipt Date: 20141022
  Transmission Date: 20150528
  Serious: Yes (Hospitalization)
  Sender: FDA-Public Use
  Company Number: US-SA-2014SA099886

PATIENT
  Age: 49 Year
  Sex: Female
  Weight: 99.79 kg

DRUGS (25)
  1. DIPHENHYDRAMINE [Concomitant]
     Active Substance: DIPHENHYDRAMINE
  2. HEPARIN [Concomitant]
     Active Substance: HEPARIN SODIUM
  3. DURAGESIC [Concomitant]
     Active Substance: FENTANYL
  4. KETOPROFEN. [Concomitant]
     Active Substance: KETOPROFEN
  5. FABRAZYME [Suspect]
     Active Substance: AGALSIDASE BETA
     Indication: FABRY^S DISEASE
     Route: 041
     Dates: start: 20110510
  6. KEFLEX [Concomitant]
     Active Substance: CEPHALEXIN
  7. FABRAZYME [Suspect]
     Active Substance: AGALSIDASE BETA
     Indication: FABRY^S DISEASE
     Route: 041
     Dates: start: 20110510
  8. LEVAQUIN [Concomitant]
     Active Substance: LEVOFLOXACIN
  9. AMITRIPTYLINE [Concomitant]
     Active Substance: AMITRIPTYLINE
  10. TRIFLURIDINE. [Concomitant]
     Active Substance: TRIFLURIDINE
  11. CYANOCOBALAMIN. [Concomitant]
     Active Substance: CYANOCOBALAMIN
  12. LORATADINE. [Concomitant]
     Active Substance: LORATADINE
  13. WATER. [Concomitant]
     Active Substance: WATER
  14. LOVENOX [Concomitant]
     Active Substance: ENOXAPARIN SODIUM
  15. FOLIC ACID. [Concomitant]
     Active Substance: FOLIC ACID
  16. FABRAZYME [Suspect]
     Active Substance: AGALSIDASE BETA
     Indication: FABRY^S DISEASE
     Route: 041
     Dates: start: 20110510
  17. PROMETHAZINE [Concomitant]
     Active Substance: PROMETHAZINE\PROMETHAZINE HYDROCHLORIDE
  18. NEXIUM [Concomitant]
     Active Substance: ESOMEPRAZOLE MAGNESIUM
  19. NORMAL SALINE [Concomitant]
     Active Substance: SODIUM CHLORIDE
  20. EPINEPHRINE. [Concomitant]
     Active Substance: EPINEPHRINE
  21. CRESTOR [Concomitant]
     Active Substance: ROSUVASTATIN CALCIUM
  22. FABRAZYME [Suspect]
     Active Substance: AGALSIDASE BETA
     Indication: FABRY^S DISEASE
     Route: 041
     Dates: start: 20110510
  23. PERCOCET [Concomitant]
     Active Substance: ACETAMINOPHEN\OXYCODONE HYDROCHLORIDE
  24. LISINOPRIL. [Concomitant]
     Active Substance: LISINOPRIL
  25. ALLOPURINOL. [Concomitant]
     Active Substance: ALLOPURINOL

REACTIONS (4)
  - Sinusitis [Unknown]
  - Removal of inert matter from skin or subcutaneous tissue [Recovered/Resolved]
  - Burning sensation [Unknown]
  - Mammoplasty [Unknown]

NARRATIVE: CASE EVENT DATE: 20140718
